FAERS Safety Report 24328143 (Version 1)
Quarter: 2024Q3

REPORT INFORMATION
  Report Type: Spontaneous
  Country: BE (occurrence: BE)
  Receive Date: 20240917
  Receipt Date: 20240917
  Transmission Date: 20241016
  Serious: Yes (Other)
  Sender: BAYER
  Company Number: BE-BAYER-2024A129292

PATIENT
  Age: 30 Year
  Sex: Female

DRUGS (4)
  1. ESTRADIOL [Suspect]
     Active Substance: ESTRADIOL
     Dosage: 150 ?G
     Route: 062
  2. ESTRADIOL [Suspect]
     Active Substance: ESTRADIOL
     Dosage: 6 MG
     Route: 048
  3. ESTRADIOL [Suspect]
     Active Substance: ESTRADIOL
     Dosage: 8 MG
     Route: 048
  4. ESTRADIOL [Suspect]
     Active Substance: ESTRADIOL
     Dosage: 12 MG
     Route: 048

REACTIONS (2)
  - Biochemical pregnancy [None]
  - Drug ineffective [None]
